FAERS Safety Report 5499597-2 (Version None)
Quarter: 2007Q4

REPORT INFORMATION
  Report Type: 
  Country: None (occurrence: None)
  Receive Date: 20071026
  Receipt Date: 20071016
  Transmission Date: 20080405
  Serious: Yes (Hospitalization, Other)
  Sender: FDA-Public Use
  Company Number: JP-BRISTOL-MYERS SQUIBB COMPANY-13889134

PATIENT
  Age: 53 Year
  Sex: Male

DRUGS (11)
  1. EFAVIRENZ [Suspect]
     Indication: HIV INFECTION
     Route: 048
     Dates: start: 20051003, end: 20060925
  2. VIDEX EC [Suspect]
     Indication: HIV INFECTION
     Route: 048
     Dates: start: 20051003, end: 20060925
  3. RETROVIR [Suspect]
     Indication: HIV INFECTION
     Route: 048
     Dates: start: 20051003, end: 20060925
  4. KALETRA [Suspect]
     Indication: HIV INFECTION
     Dosage: 4TABLET/DAILY STARTED FROM 27-OCT-2006
     Route: 048
     Dates: start: 20060926, end: 20060928
  5. EPZICOM [Suspect]
     Indication: HIV INFECTION
     Dosage: 1 DOSAGE FORM= 1 TABLET.
     Route: 048
     Dates: start: 20060926, end: 20060928
  6. URSO 250 [Concomitant]
     Dates: end: 20060928
  7. CINAL S [Concomitant]
     Dates: end: 20060928
  8. CELLULASE [Concomitant]
     Dates: end: 20060928
  9. LIPASE [Concomitant]
     Dates: end: 20060928
  10. LENDORMIN [Concomitant]
     Dates: end: 20060928
  11. URSODIOL [Concomitant]
     Dates: end: 20060929

REACTIONS (5)
  - ASCITES [None]
  - HEPATITIS B [None]
  - HEPATITIS FULMINANT [None]
  - JAUNDICE [None]
  - LIVER DISORDER [None]
